FAERS Safety Report 20391607 (Version 1)
Quarter: 2022Q1

REPORT INFORMATION
  Report Type: Spontaneous
  Country: US (occurrence: None)
  Receive Date: 20220127
  Receipt Date: 20220127
  Transmission Date: 20220423
  Serious: Yes (Other)
  Sender: FDA-Public Use
  Company Number: None

PATIENT
  Age: 75 Year
  Sex: Male

DRUGS (1)
  1. BARICITINIB [Suspect]
     Active Substance: BARICITINIB

REACTIONS (3)
  - COVID-19 pneumonia [None]
  - Septic shock [None]
  - Pulmonary embolism [None]

NARRATIVE: CASE EVENT DATE: 20211225
